FAERS Safety Report 17028368 (Version 1)
Quarter: 2019Q4

REPORT INFORMATION
  Report Type: Spontaneous
  Country: US (occurrence: US)
  Receive Date: 20191011
  Receipt Date: 20191011
  Transmission Date: 20200122
  Serious: Yes (Hospitalization)
  Sender: FDA-Public Use
  Company Number: None

PATIENT
  Age: 62 Year
  Sex: Female
  Weight: 53.3 kg

DRUGS (2)
  1. GALUNISERTIB 150 MG [Suspect]
     Active Substance: GALUNISERTIB
     Indication: UTERINE CANCER
     Route: 048
     Dates: start: 20190822
  2. CARBOPLATIN AUC6/PACLITAXEL 175MG [Suspect]
     Active Substance: CARBOPLATIN\PACLITAXEL
     Indication: UTERINE CANCER
     Dosage: ?          OTHER DOSE:547.6MG/276.5MG;?
     Route: 042
     Dates: start: 20190822

REACTIONS (3)
  - Metastatic neoplasm [None]
  - Ileus [None]
  - Small intestinal obstruction [None]

NARRATIVE: CASE EVENT DATE: 20191011
